FAERS Safety Report 18414454 (Version 1)
Quarter: 2020Q4

REPORT INFORMATION
  Report Type: Spontaneous
  Country: US (occurrence: US)
  Receive Date: 20201022
  Receipt Date: 20201022
  Transmission Date: 20210114
  Serious: Yes (Death)
  Sender: FDA-Public Use
  Company Number: US-PFIZER INC-2020409010

PATIENT
  Sex: Female

DRUGS (1)
  1. MEPERIDINE HCL [Suspect]
     Active Substance: MEPERIDINE HYDROCHLORIDE
     Dosage: DELIVER AN INCREMENTAL BOLUS DOSE OF 1 ML WITH A 15-MINUTE LOCKOUT PERIOD

REACTIONS (2)
  - Apnoeic attack [Fatal]
  - Pulse absent [Fatal]
